FAERS Safety Report 10622961 (Version 1)
Quarter: 2014Q4

REPORT INFORMATION
  Report Type: Spontaneous
  Country: IT (occurrence: IT)
  Receive Date: 20141203
  Receipt Date: 20141203
  Transmission Date: 20150529
  Serious: Yes (Hospitalization)
  Sender: FDA-Public Use
  Company Number: PHHY2014IT154547

PATIENT
  Sex: Male

DRUGS (3)
  1. VERSATIS [Suspect]
     Active Substance: LIDOCAINE
     Indication: PAIN
     Dosage: 1 DF, QD
     Route: 003
     Dates: start: 20140905, end: 20140915
  2. NORMAST [Concomitant]
     Dosage: 600 MG, QD3SDO
     Route: 048
     Dates: start: 20140905, end: 20140915
  3. GABAPENTIN. [Suspect]
     Active Substance: GABAPENTIN
     Indication: PAIN
     Dosage: 200 MG, QD
     Route: 048
     Dates: start: 20140905, end: 20140915

REACTIONS (5)
  - Disorientation [Recovered/Resolved]
  - Hallucination [Recovered/Resolved]
  - Coma [Recovered/Resolved]
  - Tremor [Recovered/Resolved]
  - Somnolence [Recovered/Resolved]

NARRATIVE: CASE EVENT DATE: 20140909
